FAERS Safety Report 8576723-X (Version None)
Quarter: 2012Q3

REPORT INFORMATION
  Report Type: 
  Country: None (occurrence: None)
  Receive Date: 20120807
  Receipt Date: 20120801
  Transmission Date: 20120928
  Serious: Yes (Other)
  Sender: FDA-Public Use
  Company Number: FR-GLAXOSMITHKLINE-B0819924A

PATIENT
  Sex: Female

DRUGS (2)
  1. LAMICTAL [Suspect]
     Indication: BIPOLAR DISORDER
     Route: 048
     Dates: start: 20120301
  2. ABILIFY [Concomitant]
     Route: 065

REACTIONS (3)
  - OSTEITIS [None]
  - OSTEONECROSIS [None]
  - FEMUR FRACTURE [None]
